FAERS Safety Report 15557952 (Version 2)
Quarter: 2018Q4

REPORT INFORMATION
  Report Type: Spontaneous
  Country: CA (occurrence: CA)
  Receive Date: 20181027
  Receipt Date: 20181228
  Transmission Date: 20190205
  Serious: Yes (Death, Hospitalization, Other)
  Sender: FDA-Public Use
  Company Number: CA-009507513-1810CAN010468

PATIENT
  Age: 70 Year
  Sex: Male

DRUGS (4)
  1. PROGRAF [Suspect]
     Active Substance: TACROLIMUS\TACROLIMUS ANHYDROUS
     Dosage: 2.5 MILLIGRAM, BID
     Dates: start: 20150823, end: 20170207
  2. MYCOPHENOLATE MOFETIL. [Suspect]
     Active Substance: MYCOPHENOLATE MOFETIL
     Dosage: UNK
  3. BCG LIVE [Suspect]
     Active Substance: BACILLUS CALMETTE-GUERIN SUBSTRAIN TICE LIVE ANTIGEN
     Indication: TRANSITIONAL CELL CARCINOMA RECURRENT
     Dosage: UNK
     Route: 043
     Dates: start: 201011
  4. PREDNISONE. [Suspect]
     Active Substance: PREDNISONE
     Dosage: UNK

REACTIONS (9)
  - Renal failure [Fatal]
  - Cystitis noninfective [Unknown]
  - Disseminated Bacillus Calmette-Guerin infection [Fatal]
  - Hydronephrosis [Fatal]
  - Delayed graft function [Fatal]
  - Cystitis [Fatal]
  - Sepsis [Fatal]
  - Renal tubular injury [Fatal]
  - Prostatitis [Recovered/Resolved]

NARRATIVE: CASE EVENT DATE: 2010
